FAERS Safety Report 17392689 (Version 1)
Quarter: 2020Q1

REPORT INFORMATION
  Report Type: Spontaneous
  Country: US (occurrence: US)
  Receive Date: 20200207
  Receipt Date: 20200207
  Transmission Date: 20200409
  Serious: No
  Sender: FDA-Public Use
  Company Number: US-GLENMARK PHARMACEUTICALS-2019GMK044766

PATIENT

DRUGS (2)
  1. MUPIROCIN OINTMENT USP, 2% [Suspect]
     Active Substance: MUPIROCIN
     Indication: BLISTER
  2. MUPIROCIN OINTMENT USP, 2% [Suspect]
     Active Substance: MUPIROCIN
     Indication: SKIN BURNING SENSATION
     Dosage: UNK (APPLIED ONCE)
     Route: 061
     Dates: start: 20191127, end: 20191127

REACTIONS (3)
  - Contraindicated product administered [Unknown]
  - No adverse event [Unknown]
  - Contraindicated product prescribed [Unknown]
